FAERS Safety Report 9607042 (Version 1)
Quarter: 2013Q4

REPORT INFORMATION
  Report Type: Spontaneous
  Country: US (occurrence: US)
  Receive Date: 20131009
  Receipt Date: 20131009
  Transmission Date: 20140711
  Serious: Yes (Other)
  Sender: FDA-Public Use
  Company Number: US-ROCHE-1282591

PATIENT
  Age: 57 Year
  Sex: Female

DRUGS (15)
  1. PEGASYS [Suspect]
     Indication: HEPATITIS C
     Dosage: 0.5ML NEEDLE EVERY SUNDAY
     Route: 058
  2. KLONOPIN [Suspect]
     Indication: PRODUCT USED FOR UNKNOWN INDICATION
     Dosage: 3 DAILY
     Route: 065
  3. RIBAVIRIN [Suspect]
     Indication: HEPATITIS C
     Dosage: 2 OF THEM TWICE DAILY
     Route: 048
  4. MIRTAZAPINE [Concomitant]
     Dosage: AT BEDTIME
     Route: 048
  5. VITAMIN D3 [Concomitant]
     Route: 065
  6. FUROSEMIDE [Concomitant]
     Route: 048
  7. LISINOPRIL [Concomitant]
     Indication: BLOOD PRESSURE
     Route: 048
  8. METAMUCIL [Concomitant]
  9. CETIRIZINE [Concomitant]
     Indication: HYPERSENSITIVITY
  10. OMEPRAZOLE [Concomitant]
     Route: 065
  11. ESTRADIOL [Concomitant]
     Route: 065
  12. IMITREX [Concomitant]
     Indication: HEADACHE
     Route: 065
  13. WELCHOL [Concomitant]
     Route: 065
  14. LOTRONEX [Concomitant]
     Route: 065
  15. AMITRIPTYLINE [Concomitant]
     Dosage: EVERY NIGHT
     Route: 065

REACTIONS (3)
  - Vascular rupture [Unknown]
  - Gait disturbance [Unknown]
  - Convulsion [Recovered/Resolved]
